FAERS Safety Report 17213200 (Version 7)
Quarter: 2025Q1

REPORT INFORMATION
  Report Type: Spontaneous
  Country: PL (occurrence: PL)
  Receive Date: 20191230
  Receipt Date: 20250103
  Transmission Date: 20250409
  Serious: Yes (Death, Life-Threatening, Other)
  Sender: MYLAN
  Company Number: PL-002147023-PHHY2019PL204186

PATIENT
  Age: 51 Year
  Sex: Female

DRUGS (14)
  1. IMATINIB [Interacting]
     Active Substance: IMATINIB
     Indication: Chronic myeloid leukaemia
     Route: 065
     Dates: start: 201601, end: 201609
  2. IMATINIB [Interacting]
     Active Substance: IMATINIB
     Indication: Myeloid leukaemia
     Route: 065
     Dates: start: 201705, end: 201707
  3. PACLITAXEL [Interacting]
     Active Substance: PACLITAXEL
     Indication: Chronic myeloid leukaemia
     Dosage: 1 DOSAGE FORM, QW
     Route: 065
  4. PACLITAXEL [Interacting]
     Active Substance: PACLITAXEL
     Indication: Breast cancer
     Dosage: UNK UNK, QW
     Route: 065
     Dates: start: 201705, end: 201707
  5. PACLITAXEL [Interacting]
     Active Substance: PACLITAXEL
     Route: 065
     Dates: start: 201607, end: 201609
  6. LETROZOLE [Suspect]
     Active Substance: LETROZOLE
     Indication: Hormone therapy
     Route: 065
  7. LETROZOLE [Suspect]
     Active Substance: LETROZOLE
     Indication: Breast cancer
  8. CAPECITABINE [Suspect]
     Active Substance: CAPECITABINE
     Indication: Chronic myeloid leukaemia
     Route: 065
     Dates: start: 201707
  9. CAPECITABINE [Suspect]
     Active Substance: CAPECITABINE
     Indication: Breast cancer
  10. TAMOXIFEN [Suspect]
     Active Substance: TAMOXIFEN
     Indication: Breast cancer
     Route: 065
  11. TAMOXIFEN [Suspect]
     Active Substance: TAMOXIFEN
     Indication: Hormone therapy
     Route: 065
  12. VINORELBINE [Suspect]
     Active Substance: VINORELBINE TARTRATE
     Indication: Chronic myeloid leukaemia
     Route: 065
     Dates: start: 201710, end: 201804
  13. VINORELBINE [Suspect]
     Active Substance: VINORELBINE TARTRATE
     Indication: Breast cancer
  14. VINORELBINE TARTRATE [Suspect]
     Active Substance: VINORELBINE TARTRATE
     Indication: Chronic myeloid leukaemia
     Route: 065

REACTIONS (13)
  - Death [Fatal]
  - Polyneuropathy [Fatal]
  - Chronic myeloid leukaemia [Fatal]
  - Disease progression [Fatal]
  - Drug interaction [Fatal]
  - Product use in unapproved indication [Fatal]
  - Second primary malignancy [Recovering/Resolving]
  - Breast cancer [Unknown]
  - Malignant neoplasm progression [Unknown]
  - Thrombocytopenia [Unknown]
  - Anaemia [Unknown]
  - Off label use [Unknown]
  - Therapy partial responder [Unknown]

NARRATIVE: CASE EVENT DATE: 20160101
